FAERS Safety Report 5136253-4 (Version None)
Quarter: 2006Q4

REPORT INFORMATION
  Report Type: 
  Country: None (occurrence: None)
  Receive Date: 20061027
  Receipt Date: 20061016
  Transmission Date: 20070319
  Serious: Yes (Other)
  Sender: FDA-Public Use
  Company Number: IT-BRISTOL-MYERS SQUIBB COMPANY-13542535

PATIENT
  Age: 34 Year
  Sex: Male

DRUGS (5)
  1. IFOSFAMIDE [Suspect]
     Indication: BONE SARCOMA
  2. BUPRENORPHINE HCL [Suspect]
     Indication: PAIN
     Route: 062
  3. DOXORUBICIN HCL [Concomitant]
     Indication: BONE SARCOMA
  4. CISPLATIN [Concomitant]
     Indication: BONE SARCOMA
  5. ETOPOSIDE [Concomitant]
     Indication: BONE SARCOMA

REACTIONS (1)
  - RESPIRATORY DEPRESSION [None]
